FAERS Safety Report 10525388 (Version 2)
Quarter: 2014Q4

REPORT INFORMATION
  Report Type: Spontaneous
  Country: CA (occurrence: CA)
  Receive Date: 20141017
  Receipt Date: 20141104
  Transmission Date: 20150528
  Serious: Yes (Other)
  Sender: FDA-Public Use
  Company Number: CA-GE HEALTHCARE MEDICAL DIAGNOSTICS-OMPQ-PR-1410S-1277

PATIENT
  Sex: Female

DRUGS (2)
  1. OMNIPAQUE [Suspect]
     Active Substance: IOHEXOL
     Indication: PRODUCT USED FOR UNKNOWN INDICATION
     Route: 042
     Dates: start: 20140822, end: 20140822
  2. OMNIPAQUE [Suspect]
     Active Substance: IOHEXOL
     Indication: DIAGNOSTIC PROCEDURE

REACTIONS (20)
  - Heart rate increased [Unknown]
  - Burning sensation [Unknown]
  - Coordination abnormal [Unknown]
  - Paraesthesia [Unknown]
  - Nerve injury [Unknown]
  - Neuropathy peripheral [Not Recovered/Not Resolved]
  - Nausea [Not Recovered/Not Resolved]
  - Dysphagia [Unknown]
  - Loss of control of legs [Unknown]
  - Tremor [Unknown]
  - Muscular weakness [Unknown]
  - Anxiety [Unknown]
  - Fatigue [Not Recovered/Not Resolved]
  - Faecal incontinence [Unknown]
  - Neuralgia [Unknown]
  - Hypoaesthesia [Unknown]
  - Throat tightness [Unknown]
  - Serum sickness [Unknown]
  - Anaphylactoid reaction [Unknown]
  - Chills [Unknown]

NARRATIVE: CASE EVENT DATE: 201408
